FAERS Safety Report 16600552 (Version 1)
Quarter: 2019Q3

REPORT INFORMATION
  Report Type: Spontaneous
  Country: FR (occurrence: FR)
  Receive Date: 20190719
  Receipt Date: 20190719
  Transmission Date: 20191004
  Serious: Yes (Life-Threatening)
  Sender: FDA-Public Use
  Company Number: FR-TEVA-2019-FR-1079693

PATIENT
  Age: 60 Year
  Sex: Female
  Weight: 91 kg

DRUGS (6)
  1. OXYNORMORO 5 MG, COMPRIM? ORODISPERSIBLE [Suspect]
     Active Substance: OXYCODONE HYDROCHLORIDE
     Dosage: 98 DOSAGE FORM
     Route: 048
     Dates: start: 20190101, end: 20190101
  2. PARACETAMOL [Concomitant]
     Active Substance: ACETAMINOPHEN
     Route: 048
     Dates: start: 20190101, end: 20190101
  3. PROPRANOLOL [Suspect]
     Active Substance: PROPRANOLOL HYDROCHLORIDE
     Dosage: 1880 MILLIGRAM
     Route: 048
     Dates: start: 20190101, end: 20190101
  4. OXYCONTIN [Suspect]
     Active Substance: OXYCODONE HYDROCHLORIDE
     Dosage: 36 DOSAGE FORM
     Route: 048
     Dates: start: 20190101, end: 20190101
  5. FLUOXETINE [Suspect]
     Active Substance: FLUOXETINE HYDROCHLORIDE
     Dosage: 240 MILLIGRAM
     Route: 048
     Dates: start: 20190101, end: 20190101
  6. MELATONINE [Suspect]
     Active Substance: MELATONIN
     Dosage: 15 DOSAGE FORM
     Route: 048
     Dates: start: 20190101, end: 20190101

REACTIONS (2)
  - Cardio-respiratory arrest [Recovered/Resolved]
  - Poisoning deliberate [Recovered/Resolved]

NARRATIVE: CASE EVENT DATE: 20190101
